FAERS Safety Report 6745108-0 (Version None)
Quarter: 2010Q2

REPORT INFORMATION
  Report Type: 
  Country: None (occurrence: None)
  Receive Date: 20100527
  Receipt Date: 20100517
  Transmission Date: 20101027
  Serious: Yes (Hospitalization)
  Sender: FDA-Public Use
  Company Number: FR-WATSON-2010-06864

PATIENT
  Age: 48 Year
  Sex: Female

DRUGS (3)
  1. IBUPROFEN TABLETS [Suspect]
     Indication: TENDONITIS
     Dosage: UNK
     Route: 048
  2. ALPRAZOLAM [Suspect]
     Indication: DEPRESSION
     Dosage: UNK
  3. FLUOXETINE [Suspect]
     Indication: DEPRESSION
     Dosage: UNK

REACTIONS (7)
  - BLINDNESS [None]
  - DERMATITIS EXFOLIATIVE [None]
  - DRUG RASH WITH EOSINOPHILIA AND SYSTEMIC SYMPTOMS [None]
  - EOSINOPHILIA [None]
  - EPSTEIN-BARR VIRUS INFECTION [None]
  - MYOCARDITIS [None]
  - RENAL FAILURE ACUTE [None]
